FAERS Safety Report 9901378 (Version 2)
Quarter: 2014Q1

REPORT INFORMATION
  Report Type: Spontaneous
  Country: FR (occurrence: FR)
  Receive Date: 20140217
  Receipt Date: 20140226
  Transmission Date: 20141002
  Serious: Yes (Hospitalization)
  Sender: FDA-Public Use
  Company Number: FR-PFIZER INC-2014038198

PATIENT
  Age: 86 Year
  Sex: Male

DRUGS (10)
  1. INSPRA [Suspect]
     Dosage: 25 MG, 1X/DAY
     Route: 048
     Dates: start: 20130822, end: 20130909
  2. OFLOCET [Suspect]
     Dosage: UNK
     Route: 048
     Dates: start: 20130822, end: 20130905
  3. FUROSEMIDE [Suspect]
     Dosage: 60 MG, 1X/DAY
     Route: 048
     Dates: start: 20130822
  4. PERINDOPRIL [Concomitant]
     Dosage: 4 MG, 1X/DAY
     Route: 048
  5. IMOVANE [Concomitant]
     Dosage: UNK
     Route: 048
  6. CORDARONE [Concomitant]
     Dosage: 1 DF, DAILY
     Route: 048
  7. BISOPROLOL FUMARATE [Concomitant]
     Dosage: 1.25 MG, 1X/DAY
     Route: 048
  8. INEXIUM /01479302/ [Concomitant]
     Dosage: 20 MG, DAILY
     Route: 048
  9. COUMADINE [Concomitant]
     Dosage: 2 MG, DAILY
     Route: 048
  10. ARANESP [Concomitant]
     Dosage: 500 UG EVERY 15 DAYS
     Route: 042

REACTIONS (3)
  - Decreased appetite [Recovering/Resolving]
  - Nausea [Recovering/Resolving]
  - Vomiting [Recovering/Resolving]
